FAERS Safety Report 18364511 (Version 1)
Quarter: 2020Q4

REPORT INFORMATION
  Report Type: Spontaneous
  Country: US (occurrence: US)
  Receive Date: 20201008
  Receipt Date: 20201008
  Transmission Date: 20210114
  Serious: Yes (Other)
  Sender: FDA-Public Use
  Company Number: None

PATIENT
  Age: 33 Year
  Sex: Female
  Weight: 70.65 kg

DRUGS (8)
  1. VITAMIN B COMPLEX [Concomitant]
     Active Substance: CYANOCOBALAMIN\DEXPANTHENOL\NIACINAMIDE\PYRIDOXINE HYDROCHLORIDE\RIBOFLAVIN 5^-PHOSPHATE SODIUM\THIAMINE HYDROCHLORIDE\VITAMIN B COMPLEX
  2. IRON [Concomitant]
     Active Substance: IRON
  3. ZOLOFT [Concomitant]
     Active Substance: SERTRALINE HYDROCHLORIDE
  4. MAGNESIUM [Concomitant]
     Active Substance: MAGNESIUM
  5. ADVIL [Concomitant]
     Active Substance: IBUPROFEN
  6. ONABOTULINUMTOXINA INJECTION [Suspect]
     Active Substance: ONABOTULINUMTOXINA
     Indication: MIGRAINE
     Dosage: ?          OTHER STRENGTH:UNITS INJECTIONS;QUANTITY:200 INJECTION(S);OTHER FREQUENCY:ONCE;OTHER ROUTE:INJECTED IN TO MUSCLE?
     Route: 030
     Dates: start: 20201002, end: 20201002
  7. GUMMY MULTIVITAMIN [Concomitant]
  8. TRAMADOL. [Concomitant]
     Active Substance: TRAMADOL

REACTIONS (9)
  - Diplopia [None]
  - Diarrhoea [None]
  - Fatigue [None]
  - Pruritus [None]
  - Vision blurred [None]
  - Chills [None]
  - Muscular weakness [None]
  - Nausea [None]
  - Feeling hot [None]

NARRATIVE: CASE EVENT DATE: 20201002
